FAERS Safety Report 7447119-9 (Version None)
Quarter: 2011Q2

REPORT INFORMATION
  Report Type: 
  Country: None (occurrence: None)
  Receive Date: 20110429
  Receipt Date: 20110418
  Transmission Date: 20111010
  Serious: Yes (Disabling, Other)
  Sender: FDA-Public Use
  Company Number: US-ELI_LILLY_AND_COMPANY-US201008005917

PATIENT
  Sex: Female
  Weight: 79.819 kg

DRUGS (1)
  1. FORTEO [Suspect]
     Indication: OSTEOPOROSIS
     Dosage: 20 UG, QD
     Dates: start: 20100401

REACTIONS (9)
  - INCREASED APPETITE [None]
  - INJECTION SITE HAEMATOMA [None]
  - ARTHRALGIA [None]
  - PAIN IN EXTREMITY [None]
  - GAIT DISTURBANCE [None]
  - WEIGHT INCREASED [None]
  - AMNESIA [None]
  - DEMENTIA [None]
  - PERSONALITY CHANGE [None]
